FAERS Safety Report 6958196-3 (Version None)
Quarter: 2010Q3

REPORT INFORMATION
  Report Type: 
  Country: None (occurrence: None)
  Receive Date: 20100827
  Receipt Date: 20100827
  Transmission Date: 20110219
  Serious: Yes (Life-Threatening, Hospitalization, Disabling, Other)
  Sender: FDA-Public Use
  Company Number: None

PATIENT
  Age: 74 Year
  Sex: Male
  Weight: 99.7913 kg

DRUGS (2)
  1. ARICEPT [Suspect]
     Dosage: HOSPITOL WILL NOT COMPLY
     Dates: start: 20100807
  2. ZYPREXA [Suspect]
     Indication: DEMENTIA
     Dosage: HOSPITOL WILL NOT COMPLY
     Dates: start: 20100818

REACTIONS (6)
  - ASPIRATION [None]
  - DEHYDRATION [None]
  - HAEMATEMESIS [None]
  - NO THERAPEUTIC RESPONSE [None]
  - SHOCK [None]
  - VITAMIN B12 DECREASED [None]
